FAERS Safety Report 19899646 (Version 1)
Quarter: 2021Q3

REPORT INFORMATION
  Report Type: Spontaneous
  Country: FR (occurrence: FR)
  Receive Date: 20210930
  Receipt Date: 20210930
  Transmission Date: 20211014
  Serious: Yes (Other)
  Sender: FDA-Public Use
  Company Number: FR-ROCHE-2920627

PATIENT
  Age: 31 Year
  Sex: Male
  Weight: 58 kg

DRUGS (4)
  1. DIAZEPAM. [Suspect]
     Active Substance: DIAZEPAM
     Indication: MENTAL DISORDER
     Dosage: INCONNUE
     Route: 048
     Dates: start: 20200213
  2. TERALITHE [Suspect]
     Active Substance: LITHIUM CARBONATE
     Indication: MENTAL DISORDER
     Dosage: INCONNUE
     Route: 048
     Dates: start: 20190517
  3. RISPERIDONE. [Suspect]
     Active Substance: RISPERIDONE
     Indication: MENTAL DISORDER
     Dosage: INCONNUE
     Route: 048
     Dates: start: 20200410
  4. DEPAKOTE [Suspect]
     Active Substance: DIVALPROEX SODIUM
     Indication: MENTAL DISORDER
     Dosage: INCONNUE
     Route: 048
     Dates: start: 2021

REACTIONS (1)
  - Sexually inappropriate behaviour [Not Recovered/Not Resolved]

NARRATIVE: CASE EVENT DATE: 20210811
